FAERS Safety Report 17665140 (Version 1)
Quarter: 2020Q2

REPORT INFORMATION
  Report Type: Spontaneous
  Country: GB (occurrence: GB)
  Receive Date: 20200414
  Receipt Date: 20200414
  Transmission Date: 20200713
  Serious: Yes (Other)
  Sender: FDA-Public Use
  Company Number: GB-PFIZER INC-2020152477

PATIENT
  Age: 5 Year
  Sex: Male

DRUGS (10)
  1. DEXAMETHASONE SODIUM PHOSPHATE. [Suspect]
     Active Substance: DEXAMETHASONE SODIUM PHOSPHATE
     Indication: ANAPLASTIC LARGE-CELL LYMPHOMA
     Dosage: UNK
  2. METHOTREXATE SODIUM. [Suspect]
     Active Substance: METHOTREXATE SODIUM
     Indication: ACUTE MYELOID LEUKAEMIA
  3. IFOSFAMIDE. [Suspect]
     Active Substance: IFOSFAMIDE
     Indication: ACUTE MYELOID LEUKAEMIA
  4. CYTARABINE. [Suspect]
     Active Substance: CYTARABINE
     Indication: ANAPLASTIC LARGE-CELL LYMPHOMA
     Dosage: UNK
  5. ETOPOSIDE. [Suspect]
     Active Substance: ETOPOSIDE
     Indication: ACUTE MYELOID LEUKAEMIA
  6. IFOSFAMIDE. [Suspect]
     Active Substance: IFOSFAMIDE
     Indication: ANAPLASTIC LARGE-CELL LYMPHOMA
     Dosage: UNK
  7. CYTARABINE. [Suspect]
     Active Substance: CYTARABINE
     Indication: ACUTE MYELOID LEUKAEMIA
  8. ETOPOSIDE. [Suspect]
     Active Substance: ETOPOSIDE
     Indication: ANAPLASTIC LARGE-CELL LYMPHOMA
     Dosage: UNK
  9. DEXAMETHASONE SODIUM PHOSPHATE. [Suspect]
     Active Substance: DEXAMETHASONE SODIUM PHOSPHATE
     Indication: ACUTE MYELOID LEUKAEMIA
  10. METHOTREXATE SODIUM. [Suspect]
     Active Substance: METHOTREXATE SODIUM
     Indication: ANAPLASTIC LARGE-CELL LYMPHOMA
     Dosage: AML1 CHEMOTHERAPY

REACTIONS (2)
  - Malignant pleural effusion [Unknown]
  - Neoplasm progression [Unknown]

NARRATIVE: CASE EVENT DATE: 201911
